FAERS Safety Report 8005456-3 (Version None)
Quarter: 2011Q4

REPORT INFORMATION
  Report Type: 
  Country: None (occurrence: None)
  Receive Date: 20111223
  Receipt Date: 20111212
  Transmission Date: 20120403
  Serious: Yes (Hospitalization)
  Sender: FDA-Public Use
  Company Number: US-ROCHE-1021306

PATIENT
  Sex: Female
  Weight: 74.6 kg

DRUGS (7)
  1. DOCETAXEL [Suspect]
     Indication: BREAST CANCER
     Route: 042
     Dates: start: 20090922
  2. HERCEPTIN [Suspect]
     Indication: BREAST CANCER
     Route: 042
     Dates: start: 20090922
  3. CARBOPLATIN [Suspect]
     Indication: BREAST CANCER
     Dosage: DOSE LEVEL : 6 AUC
     Route: 042
     Dates: start: 20090922
  4. OXYELITE PRO [Concomitant]
  5. FERROUS SULFATE TAB [Concomitant]
  6. LISINOPRIL [Concomitant]
     Dates: start: 20100528
  7. ONE A DAY 50 PLUS MULTIVITAMIN/MULTIMINERAL SUPPLEMENT [Concomitant]

REACTIONS (13)
  - EJECTION FRACTION DECREASED [None]
  - STRESS AT WORK [None]
  - FALL [None]
  - SYNCOPE [None]
  - SINUS BRADYCARDIA [None]
  - ELECTROCARDIOGRAM QT PROLONGED [None]
  - HAEMOGLOBIN DECREASED [None]
  - TREMOR [None]
  - BLOOD PRESSURE SYSTOLIC INCREASED [None]
  - ELECTROCARDIOGRAM T WAVE ABNORMAL [None]
  - SINUS TACHYCARDIA [None]
  - LACUNAR INFARCTION [None]
  - DIZZINESS [None]
